FAERS Safety Report 4682885-7 (Version None)
Quarter: 2005Q2

REPORT INFORMATION
  Report Type: 
  Country: None (occurrence: None)
  Receive Date: 20050531
  Receipt Date: 20050118
  Transmission Date: 20051028
  Serious: Yes (Hospitalization)
  Sender: FDA-Public Use
  Company Number: 200418955US

PATIENT
  Age: 80 Year
  Sex: Female

DRUGS (15)
  1. LOVENOX [Suspect]
     Indication: AORTIC VALVE REPLACEMENT
     Dosage: 80 MG Q12H IV
     Route: 042
     Dates: start: 20041022, end: 20041101
  2. WARFARIN SODIUM [Concomitant]
  3. CIPROFLOXACIN [Concomitant]
  4. CEFAZOLIN SODIUM (ANCEF) [Concomitant]
  5. INSULIN [Concomitant]
  6. NEURONTIN [Concomitant]
  7. MACROGOL (MIRALAX) [Concomitant]
  8. PIOGLITAZONE HCL [Concomitant]
  9. PROBENECID (BENEMID) [Concomitant]
  10. ZYLOPRIM [Concomitant]
  11. MEGESTROL ACETATE (MEGACE) [Concomitant]
  12. PANTOPRAZOLE SODIUM [Concomitant]
  13. ALDACTONE [Concomitant]
  14. LASIX [Concomitant]
  15. DOPAMINE [Concomitant]

REACTIONS (3)
  - BLOOD PRESSURE DECREASED [None]
  - HAEMOGLOBIN DECREASED [None]
  - HEPATIC HAEMORRHAGE [None]
